FAERS Safety Report 20605273 (Version 7)
Quarter: 2022Q3

REPORT INFORMATION
  Report Type: Spontaneous
  Country: US (occurrence: US)
  Receive Date: 20220317
  Receipt Date: 20220721
  Transmission Date: 20221027
  Serious: Yes (Other)
  Sender: FDA-Public Use
  Company Number: US-JNJFOC-20220317829

PATIENT
  Age: 23 Year
  Sex: Male

DRUGS (2)
  1. STELARA [Suspect]
     Active Substance: USTEKINUMAB
     Indication: Colitis ulcerative
     Dosage: STELARA VIAL 130.00 MG / 26.00 ML
     Route: 040
  2. STELARA [Suspect]
     Active Substance: USTEKINUMAB
     Dosage: 90.00 MG/ML
     Route: 058
     Dates: start: 202202, end: 202206

REACTIONS (2)
  - Colitis ulcerative [Unknown]
  - Drug ineffective [Unknown]

NARRATIVE: CASE EVENT DATE: 20220101
